FAERS Safety Report 14377311 (Version 1)
Quarter: 2018Q1

REPORT INFORMATION
  Report Type: Spontaneous
  Country: US (occurrence: US)
  Receive Date: 20180111
  Receipt Date: 20180111
  Transmission Date: 20180509
  Serious: No
  Sender: FDA-Public Use
  Company Number: None

PATIENT
  Age: 53 Year
  Sex: Female
  Weight: 90.27 kg

DRUGS (13)
  1. COPAXONE [Suspect]
     Active Substance: GLATIRAMER ACETATE
     Indication: MULTIPLE SCLEROSIS
     Dosage: DOSE - 1 SHOT 3X A WEEK?FREQUENCY - 11AM M-W-F
     Dates: start: 2017, end: 201710
  2. AUBAGIO [Concomitant]
     Active Substance: TERIFLUNOMIDE
  3. ATORVASTATIN [Concomitant]
     Active Substance: ATORVASTATIN
  4. CLOPIDOGREL [Concomitant]
     Active Substance: CLOPIDOGREL BISULFATE
  5. ALENDONATE [Concomitant]
  6. AMLODIPINE [Concomitant]
     Active Substance: AMLODIPINE BESYLATE
  7. LYRICA [Concomitant]
     Active Substance: PREGABALIN
  8. LISINOPRIL. [Concomitant]
     Active Substance: LISINOPRIL
  9. BACLOFEN. [Concomitant]
     Active Substance: BACLOFEN
  10. RANITIDINE. [Concomitant]
     Active Substance: RANITIDINE
  11. MULTIVITAMINS [Concomitant]
     Active Substance: VITAMINS
  12. OXYBUTYNIN. [Concomitant]
     Active Substance: OXYBUTYNIN CHLORIDE
  13. FLUOXETINE [Concomitant]
     Active Substance: FLUOXETINE HYDROCHLORIDE

REACTIONS (1)
  - Depression [None]

NARRATIVE: CASE EVENT DATE: 201707
